FAERS Safety Report 21770381 (Version 1)
Quarter: 2022Q4

REPORT INFORMATION
  Report Type: Spontaneous
  Country: US (occurrence: US)
  Receive Date: 20221223
  Receipt Date: 20221223
  Transmission Date: 20230113
  Serious: No
  Sender: FDA-Public Use
  Company Number: US-UROGEN PHARMA LTD.-2022-UGN-000125

PATIENT

DRUGS (2)
  1. JELMYTO [Suspect]
     Active Substance: MITOMYCIN
     Indication: Transitional cell cancer of the renal pelvis and ureter
     Dosage: 13 MILLILITER/CUBIC CENTIMETER (INSTILLATION)
     Dates: start: 20221017, end: 20221017
  2. JELMYTO [Suspect]
     Active Substance: MITOMYCIN
     Dosage: 13 MILLILITER/CUBIC CENTIMETER (INSTILLATION)
     Dates: start: 20221031, end: 20221031

REACTIONS (2)
  - Post procedural complication [Recovered/Resolved]
  - Flank pain [Recovered/Resolved]

NARRATIVE: CASE EVENT DATE: 20221031
